FAERS Safety Report 6125185-0 (Version None)
Quarter: 2009Q1

REPORT INFORMATION
  Report Type: 
  Country: None (occurrence: None)
  Receive Date: 20090319
  Receipt Date: 20090309
  Transmission Date: 20090719
  Serious: Yes (Other)
  Sender: FDA-Public Use
  Company Number: GB-JNJCH-2009006517

PATIENT
  Age: 28 Year
  Sex: Male

DRUGS (1)
  1. NON-DROWSY SUDAFED CONGESTION RELIEF CAPSULES [Suspect]
     Indication: MALAISE
     Dosage: TEXT:UNSPECIFIED
     Route: 048

REACTIONS (1)
  - CONVULSION [None]
